FAERS Safety Report 4413944-1 (Version None)
Quarter: 2004Q3

REPORT INFORMATION
  Report Type: 
  Country: None (occurrence: None)
  Receive Date: 20040729
  Receipt Date: 20040726
  Transmission Date: 20050211
  Serious: Yes (Life-Threatening, Hospitalization)
  Sender: FDA-Public Use
  Company Number: TCI2004A00439

PATIENT
  Age: 78 Year
  Sex: Male

DRUGS (4)
  1. LEUPLIN FOR INJECTION KIT3.75(LEUPROLIDE ACETATE) (INJECTION) [Suspect]
     Indication: METASTASES TO BONE
     Dosage: 3.75 MG (3.75 MG, 1 IN 28 D)
     Route: 058
     Dates: start: 20030630, end: 20031215
  2. LEUPLIN FOR INJECTION KIT3.75(LEUPROLIDE ACETATE) (INJECTION) [Suspect]
     Indication: PROSTATE CANCER
     Dosage: 3.75 MG (3.75 MG, 1 IN 28 D)
     Route: 058
     Dates: start: 20030630, end: 20031215
  3. FURTULON (DOXIFLURIDINE) (CAPSULES) [Suspect]
     Dosage: 800 MG (800 MG, 1 D)
     Dates: start: 20030826, end: 20040108
  4. PLETAAL (CILOSTAZOL) (TABLETS) [Suspect]
     Indication: ATHEROSCLEROSIS OBLITERANS
     Dosage: PER ORAL
     Route: 048
     Dates: start: 20030826, end: 20040108

REACTIONS (10)
  - ACQUIRED HAEMOPHILIA WITH ANTI FVIII, XI, OR XIII [None]
  - ACTIVATED PARTIAL THROMBOPLASTIN TIME PROLONGED [None]
  - BACK PAIN [None]
  - COLON CANCER [None]
  - HAEMOLYSIS [None]
  - HAEMORRHAGE [None]
  - PAIN IN EXTREMITY [None]
  - POST PROCEDURAL HAEMORRHAGE [None]
  - RETROPERITONEAL HAEMATOMA [None]
  - SUBCUTANEOUS HAEMATOMA [None]
